FAERS Safety Report 6835772-X (Version None)
Quarter: 2010Q3

REPORT INFORMATION
  Report Type: 
  Country: None (occurrence: None)
  Receive Date: 20100712
  Receipt Date: 20100712
  Transmission Date: 20110219
  Serious: Yes (Life-Threatening, Hospitalization, Disabling, Other)
  Sender: FDA-Public Use
  Company Number: None

PATIENT
  Age: 33 Year
  Sex: Female
  Weight: 104.3273 kg

DRUGS (2)
  1. YASMIN [Suspect]
     Indication: PREMENSTRUAL SYNDROME
     Dosage: DAILY PO
     Route: 048
     Dates: start: 20060101, end: 20071029
  2. YASMIN [Suspect]
     Indication: UTERINE LEIOMYOMA
     Dosage: DAILY PO
     Route: 048
     Dates: start: 20060101, end: 20071029

REACTIONS (2)
  - DEEP VEIN THROMBOSIS [None]
  - PULMONARY EMBOLISM [None]
